FAERS Safety Report 5595129-9 (Version None)
Quarter: 2008Q1

REPORT INFORMATION
  Report Type: 
  Country: None (occurrence: None)
  Receive Date: 20080117
  Receipt Date: 20080102
  Transmission Date: 20080703
  Serious: No
  Sender: FDA-Public Use
  Company Number: US-BOEHRINGER INGELHEIM PHARMACEUTICALS, INC.-2008-BP-00105BP

PATIENT
  Age: 72 Year
  Sex: Male
  Weight: 76 kg

DRUGS (4)
  1. AGGRENOX [Suspect]
     Indication: PROPHYLAXIS
     Route: 048
     Dates: start: 20071201
  2. MELATONIN [Concomitant]
     Indication: SLEEP DISORDER
  3. ARMOUR [Concomitant]
     Indication: HYPOTHYROIDISM
  4. ALTACE [Concomitant]
     Indication: HYPERTENSION

REACTIONS (1)
  - HEADACHE [None]
